FAERS Safety Report 24199690 (Version 2)
Quarter: 2024Q3

REPORT INFORMATION
  Report Type: Spontaneous
  Country: SK (occurrence: SK)
  Receive Date: 20240812
  Receipt Date: 20240817
  Transmission Date: 20241017
  Serious: Yes (Death, Hospitalization, Other)
  Sender: SANOFI AVENTIS
  Company Number: SK-EMA-DD-20240805-7482705-112514

PATIENT
  Age: 3 Year
  Sex: Male

DRUGS (12)
  1. ANTI-THYMOCYTE GLOBULIN (RABBIT) NOS [Suspect]
     Active Substance: LAPINE T-LYMPHOCYTE IMMUNE GLOBULIN
     Indication: Prophylaxis against graft versus host disease
     Dosage: UNK UNK, QCY
  2. ANTI-THYMOCYTE GLOBULIN (RABBIT) NOS [Suspect]
     Active Substance: LAPINE T-LYMPHOCYTE IMMUNE GLOBULIN
     Indication: Acute lymphocytic leukaemia
  3. ANTI-THYMOCYTE GLOBULIN (RABBIT) NOS [Suspect]
     Active Substance: LAPINE T-LYMPHOCYTE IMMUNE GLOBULIN
     Indication: Bone marrow conditioning regimen
  4. FLUDARABINE PHOSPHATE [Suspect]
     Active Substance: FLUDARABINE PHOSPHATE
     Indication: Bone marrow conditioning regimen
     Dosage: UNK UNK, QCY
  5. FLUDARABINE PHOSPHATE [Suspect]
     Active Substance: FLUDARABINE PHOSPHATE
     Indication: Acute lymphocytic leukaemia
  6. TREOSULFAN [Suspect]
     Active Substance: TREOSULFAN
     Indication: Acute lymphocytic leukaemia
     Dosage: UNK UNK, QCY
  7. TREOSULFAN [Suspect]
     Active Substance: TREOSULFAN
     Indication: Bone marrow conditioning regimen
  8. CYCLOSPORINE [Suspect]
     Active Substance: CYCLOSPORINE
     Indication: Prophylaxis against graft versus host disease
     Dosage: UNK UNK, QCY
  9. CYCLOSPORINE [Suspect]
     Active Substance: CYCLOSPORINE
     Indication: Acute lymphocytic leukaemia
  10. CYCLOSPORINE [Suspect]
     Active Substance: CYCLOSPORINE
     Indication: Bone marrow conditioning regimen
  11. THIOTEPA [Suspect]
     Active Substance: THIOTEPA
     Indication: Bone marrow conditioning regimen
     Dosage: UNK UNK, QCY
  12. THIOTEPA [Suspect]
     Active Substance: THIOTEPA
     Indication: Acute lymphocytic leukaemia

REACTIONS (20)
  - Peritonitis [Fatal]
  - Multiple organ dysfunction syndrome [Fatal]
  - Renal failure [Fatal]
  - Anuria [Fatal]
  - Respiratory failure [Fatal]
  - Graft versus host disease in gastrointestinal tract [Fatal]
  - Intestinal haemorrhage [Fatal]
  - Venoocclusive liver disease [Fatal]
  - Ascites [Fatal]
  - Fluid retention [Fatal]
  - Enterococcal infection [Fatal]
  - Protothecosis [Fatal]
  - Klebsiella infection [Fatal]
  - Febrile neutropenia [Fatal]
  - Sepsis [Fatal]
  - Stenotrophomonas infection [Fatal]
  - Staphylococcal infection [Fatal]
  - Candida infection [Fatal]
  - Pyrexia [Fatal]
  - Off label use [Unknown]
